FAERS Safety Report 7691879-9 (Version None)
Quarter: 2011Q3

REPORT INFORMATION
  Report Type: 
  Country: None (occurrence: None)
  Receive Date: 20110818
  Receipt Date: 20110815
  Transmission Date: 20111222
  Serious: Yes (Death, Other)
  Sender: FDA-Public Use
  Company Number: DE-TEVA-296672GER

PATIENT
  Age: 49 Year
  Sex: Female

DRUGS (3)
  1. GEFITINIB [Suspect]
     Indication: LUNG ADENOCARCINOMA METASTATIC
     Dosage: 250 MILLIGRAM;
  2. PEMETREXED [Suspect]
     Indication: LUNG ADENOCARCINOMA METASTATIC
  3. CISPLATIN [Suspect]
     Indication: LUNG ADENOCARCINOMA METASTATIC

REACTIONS (2)
  - DRUG INEFFECTIVE [None]
  - RESPIRATORY FAILURE [None]
